FAERS Safety Report 8607770-7 (Version None)
Quarter: 2012Q3

REPORT INFORMATION
  Report Type: 
  Country: None (occurrence: None)
  Receive Date: 20120821
  Receipt Date: 20120816
  Transmission Date: 20120928
  Serious: Yes (Death, Congenital Anomaly)
  Sender: FDA-Public Use
  Company Number: FR-ABBOTT-12P-056-0960304-00

PATIENT
  Sex: Male

DRUGS (3)
  1. REYATAZ [Suspect]
     Indication: MATERNAL EXPOSURE TIMING UNSPECIFIED
     Route: 064
  2. NORVIR [Suspect]
     Indication: MATERNAL EXPOSURE TIMING UNSPECIFIED
     Route: 064
  3. TRUVADA [Suspect]
     Indication: MATERNAL EXPOSURE TIMING UNSPECIFIED
     Route: 064

REACTIONS (14)
  - ABDOMINAL DISTENSION [None]
  - TRISOMY 21 [None]
  - DYSMORPHISM [None]
  - RENAL APLASIA [None]
  - FOETAL EXPOSURE DURING PREGNANCY [None]
  - RENAL DYSPLASIA [None]
  - INTESTINAL MALROTATION [None]
  - LOW SET EARS [None]
  - CLEFT PALATE [None]
  - ANAL ATRESIA [None]
  - PROTRUSION TONGUE [None]
  - BLADDER DILATATION [None]
  - PERSISTENT CLOACA [None]
  - EAGLE BARRETT SYNDROME [None]
